FAERS Safety Report 8819533 (Version 1)
Quarter: 2012Q4

REPORT INFORMATION
  Report Type: 
  Country: US (occurrence: US)
  Receive Date: 20120930
  Receipt Date: 20120930
  Transmission Date: 20130627
  Serious: No
  Sender: FDA-Public Use
  Company Number: US-009507513-1209USA012026

PATIENT
  Sex: Male

DRUGS (3)
  1. PEGINTRON [Suspect]
     Indication: HEPATITIS C
     Dosage: UNK
     Dates: start: 20120413
  2. REBETOL [Suspect]
     Indication: HEPATITIS C
     Dosage: UNK
     Dates: start: 20120413
  3. VICTRELIS [Suspect]
     Indication: HEPATITIS C
     Dosage: UNK
     Dates: start: 20120511

REACTIONS (3)
  - Lip dry [Unknown]
  - Chapped lips [Unknown]
  - Alopecia [Unknown]
